FAERS Safety Report 12783135 (Version 1)
Quarter: 2016Q3

REPORT INFORMATION
  Report Type: Spontaneous
  Country: US (occurrence: US)
  Receive Date: 20160927
  Receipt Date: 20160927
  Transmission Date: 20161109
  Serious: Yes (Other)
  Sender: FDA-Public Use
  Company Number: US-BEH-2009020857

PATIENT
  Age: 37 Year
  Sex: Female

DRUGS (6)
  1. VIVAGLOBIN [Suspect]
     Active Substance: HUMAN IMMUNOGLOBULIN G
  2. PULMOZYME [Concomitant]
     Active Substance: DORNASE ALFA
     Dosage: 3-4 TIMES DAILY
     Route: 048
  3. VIVAGLOBIN [Suspect]
     Active Substance: HUMAN IMMUNOGLOBULIN G
     Indication: IMMUNODEFICIENCY COMMON VARIABLE
     Dosage: 46 ML WEEKLY IN 4 SITES
     Route: 058
     Dates: start: 200907
  4. VIVAGLOBIN [Suspect]
     Active Substance: HUMAN IMMUNOGLOBULIN G
  5. LIALDA [Concomitant]
     Active Substance: MESALAMINE
     Dosage: ONCE DAILY
     Route: 048
  6. VIOKASE [Concomitant]
     Active Substance: PANCRELIPASE
     Dosage: 3 WITH MEALS, 2 WITH SNACKS

REACTIONS (3)
  - Arthralgia [Recovered/Resolved]
  - Abasia [Recovered/Resolved]
  - Infusion site extravasation [Recovered/Resolved]

NARRATIVE: CASE EVENT DATE: 20090923
